FAERS Safety Report 23989524 (Version 2)
Quarter: 2024Q3

REPORT INFORMATION
  Report Type: Spontaneous
  Country: JP (occurrence: JP)
  Receive Date: 20240619
  Receipt Date: 20240705
  Transmission Date: 20241016
  Serious: Yes (Hospitalization)
  Sender: REGENERON
  Company Number: JP-BAYER-2024A084768

PATIENT
  Age: 82 Year
  Sex: Male

DRUGS (1)
  1. EYLEA [Suspect]
     Active Substance: AFLIBERCEPT
     Indication: Age-related macular degeneration
     Dosage: UNK; SOLUTION FOR INJECTION IN PRE-FILLED SYRINGE, 40 MG/ML
     Dates: start: 20230822

REACTIONS (1)
  - Aortic aneurysm rupture [Unknown]

NARRATIVE: CASE EVENT DATE: 20230906
